FAERS Safety Report 12315837 (Version 3)
Quarter: 2016Q2

REPORT INFORMATION
  Report Type: Spontaneous
  Country: ES (occurrence: ES)
  Receive Date: 20160428
  Receipt Date: 20160622
  Transmission Date: 20160815
  Serious: Yes (Death, Other)
  Sender: FDA-Public Use
  Company Number: ES-GILEAD-2016-0209323

PATIENT
  Age: 52 Year
  Sex: Male

DRUGS (4)
  1. RIBAVIRIN. [Concomitant]
     Active Substance: RIBAVIRIN
     Indication: PRODUCT USED FOR UNKNOWN INDICATION
     Route: 065
  2. DACLATASVIR. [Concomitant]
     Active Substance: DACLATASVIR
     Indication: HEPATITIS C
     Dosage: UNK
     Route: 065
     Dates: start: 201503
  3. METHADONE [Concomitant]
     Active Substance: METHADONE HYDROCHLORIDE
     Indication: DRUG ABUSE
     Dosage: UNK
     Route: 065
  4. SOVALDI [Suspect]
     Active Substance: SOFOSBUVIR
     Indication: HEPATITIS C
     Dosage: UNK
     Route: 065
     Dates: start: 201503

REACTIONS (11)
  - Death [Fatal]
  - Lymphoma [Unknown]
  - Diarrhoea [Unknown]
  - Thrombocytopenia [Unknown]
  - Asthenia [Unknown]
  - Oedema [Unknown]
  - Pneumonia klebsiella [Unknown]
  - Ascites [Unknown]
  - Skin ulcer [Unknown]
  - Splenomegaly [Unknown]
  - Vein disorder [Unknown]

NARRATIVE: CASE EVENT DATE: 201511
